FAERS Safety Report 7340438-6 (Version None)
Quarter: 2011Q1

REPORT INFORMATION
  Report Type: 
  Country: None (occurrence: None)
  Receive Date: 20110309
  Receipt Date: 20110308
  Transmission Date: 20110831
  Serious: Yes (Death, Hospitalization)
  Sender: FDA-Public Use
  Company Number: AU-SANOFI-AVENTIS-2010SA068940

PATIENT
  Age: 85 Year
  Sex: Female

DRUGS (7)
  1. TRAMAL [Concomitant]
     Route: 065
  2. ARAVA [Suspect]
     Route: 048
     Dates: start: 20081120
  3. FOLIC ACID [Concomitant]
     Route: 065
  4. ANTIHYPERTENSIVES [Concomitant]
     Route: 065
  5. ARAVA [Suspect]
     Dosage: 5 DAYS IN A WEEK.
     Route: 048
  6. METHOTREXATE [Concomitant]
     Route: 065
  7. PARACETAMOL [Concomitant]
     Route: 065

REACTIONS (2)
  - BRONCHOPNEUMONIA [None]
  - FALL [None]
